FAERS Safety Report 24287829 (Version 1)
Quarter: 2024Q3

REPORT INFORMATION
  Report Type: Spontaneous
  Country: US (occurrence: US)
  Receive Date: 20240905
  Receipt Date: 20240905
  Transmission Date: 20241017
  Serious: Yes (Hospitalization)
  Sender: PFIZER
  Company Number: US-PFIZER INC-202400250054

PATIENT

DRUGS (1)
  1. ELRANATAMAB [Suspect]
     Active Substance: ELRANATAMAB
     Dosage: 12 MG

REACTIONS (4)
  - Immune effector cell-associated neurotoxicity syndrome [Unknown]
  - Haemophagocytic lymphohistiocytosis [Unknown]
  - Mediastinal mass [Unknown]
  - Pulseless electrical activity [Unknown]
